FAERS Safety Report 8064986-9 (Version None)
Quarter: 2012Q1

REPORT INFORMATION
  Report Type: 
  Country: None (occurrence: None)
  Receive Date: 20120124
  Receipt Date: 20120118
  Transmission Date: 20120608
  Serious: No
  Sender: FDA-Public Use
  Company Number: US-BIOGENIDEC-2012BI002253

PATIENT
  Age: 40 Year
  Sex: Female

DRUGS (1)
  1. TYSABRI [Suspect]
     Indication: MULTIPLE SCLEROSIS
     Route: 042
     Dates: start: 20110222

REACTIONS (7)
  - URINARY TRACT DISORDER [None]
  - DYSPHONIA [None]
  - FATIGUE [None]
  - DEMENTIA [None]
  - AMNESIA [None]
  - INFLUENZA LIKE ILLNESS [None]
  - TENSION HEADACHE [None]
